FAERS Safety Report 20683230 (Version 2)
Quarter: 2022Q2

REPORT INFORMATION
  Report Type: Report from Study
  Country: EG (occurrence: EG)
  Receive Date: 20220407
  Receipt Date: 20220411
  Transmission Date: 20220721
  Serious: Yes (Other)
  Sender: FDA-Public Use
  Company Number: EG-NOVARTISPH-NVSC2022EG070064

PATIENT
  Age: 33 Year
  Sex: Female

DRUGS (5)
  1. COSENTYX [Suspect]
     Active Substance: SECUKINUMAB
     Indication: Psoriasis
     Dosage: 150 MG, QMO FOR 2 MONTHS
     Route: 065
     Dates: start: 202003, end: 202005
  2. COSENTYX [Suspect]
     Active Substance: SECUKINUMAB
     Indication: Psoriatic arthropathy
     Dosage: 150 MG, EVERY OTHER WEEK AS A LOADING DOSE FOR 2 MONTHS
     Route: 065
     Dates: start: 202005, end: 202007
  3. COSENTYX [Suspect]
     Active Substance: SECUKINUMAB
     Dosage: 150 MG, QMO AS MAINTENANCE DOSE
     Route: 065
     Dates: start: 202008
  4. BISOPROLOL FUMARATE [Concomitant]
     Active Substance: BISOPROLOL FUMARATE
     Indication: Hypertension
     Dosage: UNK, QD
     Route: 065
     Dates: start: 202001, end: 202111
  5. FOLIC ACID [Concomitant]
     Active Substance: FOLIC ACID
     Indication: Thalassaemia
     Dosage: UNK, QD
     Route: 065
     Dates: start: 201912

REACTIONS (7)
  - Psoriatic arthropathy [Recovered/Resolved]
  - Psoriasis [Recovered/Resolved]
  - Arthralgia [Recovered/Resolved]
  - Unevaluable event [Recovered/Resolved]
  - Anaemia [Not Recovered/Not Resolved]
  - Quality of life decreased [Unknown]
  - Off label use [Unknown]

NARRATIVE: CASE EVENT DATE: 20200301
